FAERS Safety Report 6753307-7 (Version None)
Quarter: 2010Q2

REPORT INFORMATION
  Report Type: 
  Country: None (occurrence: None)
  Receive Date: 20100603
  Receipt Date: 20100525
  Transmission Date: 20101027
  Serious: No
  Sender: FDA-Public Use
  Company Number: DE-ASTRAZENECA-2010SE23912

PATIENT
  Sex: Female

DRUGS (2)
  1. SEROQUEL [Suspect]
     Route: 048
     Dates: start: 20091001
  2. VENLAFAXINE [Concomitant]

REACTIONS (4)
  - ASTHENIA [None]
  - FEELING OF BODY TEMPERATURE CHANGE [None]
  - OROPHARYNGEAL PAIN [None]
  - SPLENOMEGALY [None]
